FAERS Safety Report 23682860 (Version 1)
Quarter: 2024Q1

REPORT INFORMATION
  Report Type: Report from Study
  Country: US (occurrence: US)
  Receive Date: 20240328
  Receipt Date: 20240328
  Transmission Date: 20240409
  Serious: Yes (Hospitalization, Other)
  Sender: FDA-Public Use
  Company Number: US-OTSUKA PHARMACEUTICAL NETHERLANDS B.V.-AUR-005492

PATIENT
  Age: 46 Year
  Sex: Female

DRUGS (15)
  1. LUPKYNIS [Suspect]
     Active Substance: VOCLOSPORIN
     Indication: Lupus nephritis
     Dosage: 15.8 MILLIGRAM, BID
     Route: 048
     Dates: start: 20220707
  2. SKELAXIN [Concomitant]
     Active Substance: METAXALONE
     Indication: Fibromyalgia
     Dosage: UNK
     Dates: start: 20180101
  3. MAGNESIUM [Concomitant]
     Active Substance: MAGNESIUM
     Indication: Migraine prophylaxis
     Dosage: UNK
     Dates: start: 20170101
  4. CELLCEPT [Concomitant]
     Active Substance: MYCOPHENOLATE MOFETIL
     Indication: Lupus nephritis
     Dosage: UNK
     Dates: start: 20130101
  5. NALTREXONE [Concomitant]
     Active Substance: NALTREXONE
     Indication: Arthralgia
     Dosage: UNK
     Dates: start: 20220614
  6. LOSARTAN [Concomitant]
     Active Substance: LOSARTAN
     Indication: Hypertension
     Dosage: UNK
     Dates: start: 20240110
  7. PROZAC [Concomitant]
     Active Substance: FLUOXETINE HYDROCHLORIDE
     Indication: Anxiety
     Dosage: UNK
     Dates: start: 20240110
  8. TRAZODONE [Concomitant]
     Active Substance: TRAZODONE HYDROCHLORIDE
     Indication: Prophylaxis
     Dosage: UNK
     Dates: start: 20240110
  9. TRAZODONE [Concomitant]
     Active Substance: TRAZODONE HYDROCHLORIDE
     Indication: Insomnia
  10. VITAMIN D3 [Concomitant]
     Active Substance: CHOLECALCIFEROL
     Indication: Vitamin D deficiency
     Dosage: UNK
     Dates: start: 20240110
  11. PLAQUENIL [Concomitant]
     Active Substance: HYDROXYCHLOROQUINE SULFATE
     Indication: Lupus nephritis
     Dosage: UNK
     Dates: start: 20240110
  12. TOPAMAX [Concomitant]
     Active Substance: TOPIRAMATE
     Indication: Migraine
     Dosage: UNK
  13. PRAZOSIN [Concomitant]
     Active Substance: PRAZOSIN
     Indication: Prophylaxis
     Dosage: UNK
     Dates: start: 20240110
  14. PRAZOSIN [Concomitant]
     Active Substance: PRAZOSIN
     Indication: Nightmare
  15. SPIRONOLACTONE [Concomitant]
     Active Substance: SPIRONOLACTONE
     Indication: Hypertension
     Dosage: UNK
     Dates: start: 20240110

REACTIONS (8)
  - Leukopenia [Recovered/Resolved]
  - Pericarditis [Recovered/Resolved with Sequelae]
  - Bradycardia [Recovered/Resolved]
  - Bronchitis [Recovered/Resolved]
  - Gastrooesophageal reflux disease [Not Recovered/Not Resolved]
  - Chest pain [Recovered/Resolved]
  - Pain in extremity [Recovered/Resolved]
  - Anaemia [Not Recovered/Not Resolved]

NARRATIVE: CASE EVENT DATE: 20231118
